FAERS Safety Report 8790026 (Version 2)
Quarter: 2013Q3

REPORT INFORMATION
  Report Type: Report from Study
  Country: JP (occurrence: JP)
  Receive Date: 20120917
  Receipt Date: 20130910
  Transmission Date: 20140515
  Serious: Yes (Other)
  Sender: FDA-Public Use
  Company Number: JP-VERTEX PHARMACEUTICAL INC.-AE-2012-009061

PATIENT
  Age: 69 Year
  Sex: Male

DRUGS (16)
  1. RIBAVIRIN [Suspect]
     Dosage: 200 MG, QOD
     Route: 048
     Dates: start: 20120419, end: 20120612
  2. RIBAVIRIN [Suspect]
     Dosage: 200 MG, QD
     Route: 048
     Dates: start: 20120613, end: 20120724
  3. ZYLORIC [Concomitant]
     Dosage: 100 MG, QD
     Route: 048
     Dates: start: 20120516
  4. MYSLEE [Concomitant]
     Dosage: 2.5 MG/DAY, PRN
     Route: 048
  5. MYSLEE [Concomitant]
     Dosage: 10 MG, QD
     Route: 048
  6. BENECID [Concomitant]
     Dosage: 250 MG, QD
     Route: 048
     Dates: end: 20120613
  7. DOGMATYL [Concomitant]
     Dosage: 150 MG, QD
     Route: 048
     Dates: end: 20120613
  8. OMEPRAZON [Concomitant]
     Dosage: 10 MG, QD
     Route: 048
  9. LOXONIN [Concomitant]
     Dosage: 60 MG/DAY, PRN
     Route: 048
     Dates: start: 20120324, end: 20120419
  10. VX-950 (TELAPREVIR) [Suspect]
     Indication: CHRONIC HEPATITIS C
     Dosage: 1500 MG, QD
     Route: 048
     Dates: start: 20120307, end: 20120424
  11. VX-950 (TELAPREVIR) [Suspect]
     Dosage: 1000 MG, QD
     Route: 048
     Dates: start: 20120425, end: 20120530
  12. PEGINTERFERON ALFA-2B [Suspect]
     Indication: CHRONIC HEPATITIS C
     Dosage: 1.5 ?G/KG, QW
     Route: 058
     Dates: start: 20120307, end: 20120627
  13. PEGINTERFERON ALFA-2B [Suspect]
     Dosage: 80 ?G/BODY
     Route: 058
     Dates: start: 20120704, end: 20120718
  14. RIBAVIRIN [Suspect]
     Indication: CHRONIC HEPATITIS C
     Dosage: 600 MG, QD
     Route: 048
     Dates: start: 20120307, end: 20120320
  15. RIBAVIRIN [Suspect]
     Dosage: 400 MG, QD
     Route: 048
     Dates: start: 20120321, end: 20120410
  16. RIBAVIRIN [Suspect]
     Dosage: 200 MG, QD
     Route: 048
     Dates: start: 20120411, end: 20120418

REACTIONS (2)
  - Depression [Recovered/Resolved]
  - Anaemia [Not Recovered/Not Resolved]
